FAERS Safety Report 9651680 (Version 1)
Quarter: 2013Q4

REPORT INFORMATION
  Report Type: Report from Study
  Country: GR (occurrence: GR)
  Receive Date: 20131029
  Receipt Date: 20131029
  Transmission Date: 20140711
  Serious: Yes (Death, Hospitalization, Other)
  Sender: FDA-Public Use
  Company Number: GR-ASTELLAS-2013US011209

PATIENT
  Age: 84 Year
  Sex: Female

DRUGS (2)
  1. ERLOTINIB TABLET [Suspect]
     Indication: LUNG ADENOCARCINOMA
     Dosage: 150 MG, UID/QD
     Route: 065
     Dates: start: 201205
  2. ERLOTINIB TABLET [Suspect]
     Dosage: 100 MG, UID/QD
     Route: 065

REACTIONS (6)
  - Pleural effusion [Fatal]
  - Dyspnoea [Fatal]
  - Mucosal inflammation [Unknown]
  - Therapy responder [Unknown]
  - Rash [Unknown]
  - Stomatitis [Unknown]
